FAERS Safety Report 9799004 (Version 1)
Quarter: 2013Q4

REPORT INFORMATION
  Report Type: Spontaneous
  Country: US (occurrence: None)
  Receive Date: 20131231
  Receipt Date: 20131231
  Transmission Date: 20140711
  Serious: Yes (Hospitalization)
  Sender: FDA-Public Use
  Company Number: 2013SA129821

PATIENT
  Sex: Female

DRUGS (1)
  1. AUBAGIO [Suspect]
     Indication: MULTIPLE SCLEROSIS
     Dosage: 14 MILLIGRAM(S), DAILY, ORAL
     Route: 048
     Dates: start: 201302

REACTIONS (9)
  - Neck pain [None]
  - Pain in extremity [None]
  - Back pain [None]
  - Pain in extremity [None]
  - Arthralgia [None]
  - Flank pain [None]
  - Hypoaesthesia [None]
  - Paraesthesia [None]
  - Pain [None]
